FAERS Safety Report 5096581-8 (Version None)
Quarter: 2006Q3

REPORT INFORMATION
  Report Type: 
  Country: None (occurrence: None)
  Receive Date: 20060830
  Receipt Date: 20060818
  Transmission Date: 20061208
  Serious: Yes (Hospitalization, Other)
  Sender: FDA-Public Use
  Company Number: 2006101854

PATIENT
  Age: 65 Year
  Sex: Female
  Weight: 80 kg

DRUGS (6)
  1. LYRICA [Suspect]
     Indication: NEURALGIA
     Dosage: 150 MG (75 MG, 2 IN 1 D), ORAL
     Route: 048
     Dates: start: 20051101
  2. PRINZIDE [Concomitant]
  3. BISOPROLOL FUMARATE [Concomitant]
  4. DAFLON (DIOSMIN) [Concomitant]
  5. VITAMIN B6 (VITAMIN B6) [Concomitant]
  6. ALLOPURINOL [Concomitant]

REACTIONS (5)
  - CEREBROVASCULAR ACCIDENT [None]
  - DRUG DOSE OMISSION [None]
  - NERVOUSNESS [None]
  - SOMNOLENCE [None]
  - WEIGHT INCREASED [None]
